FAERS Safety Report 7234460-8 (Version None)
Quarter: 2011Q1

REPORT INFORMATION
  Report Type: 
  Country: None (occurrence: None)
  Receive Date: 20110119
  Receipt Date: 20110114
  Transmission Date: 20110831
  Serious: Yes (Other)
  Sender: FDA-Public Use
  Company Number: US-RB-014339-10

PATIENT
  Age: 39 Year
  Sex: Male

DRUGS (1)
  1. SUBOXONE [Suspect]
     Indication: PRODUCT USED FOR UNKNOWN INDICATION
     Dosage: UNKNOWN DOSING DETAILS
     Route: 065

REACTIONS (13)
  - DECREASED APPETITE [None]
  - ANKLE FRACTURE [None]
  - DEPRESSION [None]
  - PARANOIA [None]
  - POOR PERSONAL HYGIENE [None]
  - OEDEMA PERIPHERAL [None]
  - PANIC ATTACK [None]
  - INSOMNIA [None]
  - BACK INJURY [None]
  - SUICIDE ATTEMPT [None]
  - ABNORMAL LOSS OF WEIGHT [None]
  - SUICIDAL IDEATION [None]
  - INTENTIONAL DRUG MISUSE [None]
